FAERS Safety Report 24293005 (Version 1)
Quarter: 2024Q3

REPORT INFORMATION
  Report Type: Spontaneous
  Country: US (occurrence: None)
  Receive Date: 20240906
  Receipt Date: 20240906
  Transmission Date: 20241017
  Serious: No
  Sender: DOMPE FARMACEUTICI
  Company Number: US-FARMAPROD-202311-3359

PATIENT
  Sex: Female

DRUGS (3)
  1. OXERVATE [Suspect]
     Active Substance: CENEGERMIN-BKBJ
     Indication: Neurotrophic keratopathy
     Route: 047
     Dates: start: 20231031
  2. LUBRICATING EYE [Concomitant]
     Active Substance: MINERAL OIL\PETROLATUM
     Dosage: 0.3%-0.4%
  3. KEYTRUDA [Concomitant]
     Active Substance: PEMBROLIZUMAB
     Dosage: 100 MG/4ML VIAL

REACTIONS (2)
  - Erythema of eyelid [Unknown]
  - Swelling of eyelid [Unknown]
